FAERS Safety Report 6880254-2 (Version None)
Quarter: 2010Q3

REPORT INFORMATION
  Report Type: 
  Country: None (occurrence: None)
  Receive Date: 20100728
  Receipt Date: 20100715
  Transmission Date: 20110219
  Serious: Yes (Other)
  Sender: FDA-Public Use
  Company Number: BR-PFIZER INC-2010078260

PATIENT
  Age: 62 Year
  Sex: Male
  Weight: 100 kg

DRUGS (7)
  1. CHAMPIX [Suspect]
     Indication: TOBACCO USER
     Dosage: UNK
     Route: 048
     Dates: start: 20100622, end: 20100101
  2. CHAMPIX [Suspect]
     Dosage: 1 MG, 2X/DAY, EVERY 12 HOURS
     Route: 048
     Dates: start: 20100101
  3. GLUCOFORMIN [Concomitant]
     Indication: DIABETES MELLITUS
     Dosage: UNK
  4. SIMVASTATIN [Concomitant]
     Indication: PROPHYLAXIS
     Dosage: UNK
  5. VALSARTAN [Concomitant]
     Indication: HYPERTENSION
     Dosage: UNK
  6. CAPTOPRIL [Concomitant]
     Indication: HYPERTENSION
     Dosage: UNK
  7. XALATAN [Concomitant]
     Indication: INTRAOCULAR PRESSURE TEST ABNORMAL
     Dosage: UNK

REACTIONS (1)
  - BLOOD PRESSURE INCREASED [None]
